FAERS Safety Report 13828914 (Version 1)
Quarter: 2017Q3

REPORT INFORMATION
  Report Type: Spontaneous
  Country: US (occurrence: US)
  Receive Date: 20170803
  Receipt Date: 20170803
  Transmission Date: 20171127
  Serious: No
  Sender: FDA-Public Use
  Company Number: US-JNJFOC-20140702609

PATIENT
  Sex: Female

DRUGS (4)
  1. ACNE MEDICATION [Concomitant]
     Active Substance: UNSPECIFIED INGREDIENT
     Indication: ACNE
     Route: 061
  2. MICROGESTIN [Concomitant]
     Active Substance: ETHINYL ESTRADIOL\NORETHINDRONE ACETATE
     Indication: CONTRACEPTION
     Route: 048
     Dates: start: 2012
  3. AXERT [Suspect]
     Active Substance: ALMOTRIPTAN MALATE
     Indication: MIGRAINE
     Route: 048
  4. LEXAPRO [Concomitant]
     Active Substance: ESCITALOPRAM OXALATE
     Route: 048
     Dates: start: 2013

REACTIONS (2)
  - Product packaging quantity issue [Unknown]
  - Drug dose omission [Recovered/Resolved]
